FAERS Safety Report 7582487-9 (Version None)
Quarter: 2011Q2

REPORT INFORMATION
  Report Type: 
  Country: None (occurrence: None)
  Receive Date: 20110630
  Receipt Date: 20110622
  Transmission Date: 20111010
  Serious: Yes (Hospitalization, Other)
  Sender: FDA-Public Use
  Company Number: JP-ASTELLAS-2011JP004160

PATIENT
  Age: 53 Year
  Sex: Male
  Weight: 78.3 kg

DRUGS (6)
  1. BASILIXIMAB [Concomitant]
     Indication: PROPHYLAXIS AGAINST TRANSPLANT REJECTION
     Dosage: 20 MG, UNKNOWN/D
     Route: 065
  2. PROGRAF [Suspect]
     Indication: PROPHYLAXIS AGAINST TRANSPLANT REJECTION
     Dosage: 0.1 MG/KG, UNKNOWN/D
     Route: 065
  3. METHYLPREDNISOLONE [Concomitant]
     Indication: PROPHYLAXIS AGAINST TRANSPLANT REJECTION
     Dosage: 20 MG, UNKNOWN/D
     Route: 065
  4. MYCOPHENOLATE MEFETIL [Concomitant]
     Indication: PROPHYLAXIS AGAINST TRANSPLANT REJECTION
     Dosage: 2 G, UNKNOWN/D
     Route: 065
  5. BASILIXIMAB [Concomitant]
     Dosage: 20 MG, UNKNOWN/D
     Route: 065
  6. WARFARIN SODIUM [Concomitant]
     Route: 048

REACTIONS (2)
  - KIDNEY RUPTURE [None]
  - IMPAIRED HEALING [None]
